FAERS Safety Report 4906110-4 (Version None)
Quarter: 2006Q1

REPORT INFORMATION
  Report Type: 
  Country: None (occurrence: None)
  Receive Date: 20060207
  Receipt Date: 20060207
  Transmission Date: 20060701
  Serious: Yes (Hospitalization)
  Sender: FDA-Public Use
  Company Number: None

PATIENT
  Age: 62 Year
  Sex: Male

DRUGS (12)
  1. WARFARIN [Suspect]
     Dosage: 5MG PO QHS EXCEPT 2.5MG ON FRI
     Route: 048
     Dates: start: 20021008, end: 20051228
  2. CLOPIDOGREL [Suspect]
     Dosage: 75MG PO QD
     Route: 048
     Dates: start: 20040601, end: 20051228
  3. ASPIRIN [Concomitant]
  4. METOPROLOL [Concomitant]
  5. NITROGLYCERIN [Concomitant]
  6. RANITIDINE HCL [Concomitant]
  7. TRAMADOL [Concomitant]
  8. WARFARIN NA [Concomitant]
  9. SIMVASTATIN [Concomitant]
  10. LASIX [Concomitant]
  11. ENALAPRIL [Concomitant]
  12. PLAVIX [Concomitant]

REACTIONS (3)
  - DIZZINESS [None]
  - EPISTAXIS [None]
  - HAEMATOCRIT DECREASED [None]
